FAERS Safety Report 20433185 (Version 2)
Quarter: 2022Q1

REPORT INFORMATION
  Report Type: Spontaneous
  Country: US (occurrence: US)
  Receive Date: 20220205
  Receipt Date: 20220225
  Transmission Date: 20220423
  Serious: No
  Sender: FDA-Public Use
  Company Number: US-SA-SAC20220130000134

PATIENT
  Age: 62 Year
  Sex: Male

DRUGS (1)
  1. DUPIXENT [Suspect]
     Active Substance: DUPILUMAB
     Dosage: 300 MG
     Route: 058
     Dates: start: 20211023

REACTIONS (4)
  - Cough [Unknown]
  - Fatigue [Unknown]
  - Oral herpes [Unknown]
  - Discomfort [Unknown]

NARRATIVE: CASE EVENT DATE: 20220105
